FAERS Safety Report 9049314 (Version 1)
Quarter: 2013Q1

REPORT INFORMATION
  Report Type: Spontaneous
  Country: US (occurrence: US)
  Receive Date: 20130205
  Receipt Date: 20130205
  Transmission Date: 20140127
  Serious: No
  Sender: FDA-Public Use
  Company Number: US-B.I. PHARMACEUTICALS,INC./RIDGEFIELD-2013-BI-02655BP

PATIENT
  Age: 68 Year
  Sex: Male

DRUGS (10)
  1. PRADAXA [Suspect]
     Indication: ATRIAL FIBRILLATION
     Dosage: 300 MG
     Route: 048
     Dates: start: 2010
  2. POTASSIUM [Concomitant]
     Route: 048
  3. GLIPIZIDE [Concomitant]
     Indication: DIABETES MELLITUS
     Route: 048
  4. LASIX [Concomitant]
     Dosage: 80 MG
     Route: 048
  5. METOPROLOL [Concomitant]
     Indication: HYPERTENSION
     Dosage: 50 MG
     Route: 048
  6. HYDROCHLOROTHIAZIDE [Concomitant]
     Route: 048
  7. DILTIAZEM [Concomitant]
     Dosage: 160 MG
     Route: 048
  8. LEVOTHYROXINE [Concomitant]
     Dosage: 100 MCG
     Route: 048
  9. SIMVASTATIN [Concomitant]
     Indication: BLOOD CHOLESTEROL INCREASED
     Dosage: 10 MG
     Route: 048
  10. TIZANIDINE [Concomitant]
     Indication: FIBROMYALGIA
     Route: 048

REACTIONS (1)
  - Therapeutic response unexpected [Recovered/Resolved]
